FAERS Safety Report 10310927 (Version 1)
Quarter: 2014Q3

REPORT INFORMATION
  Report Type: Spontaneous
  Country: JP (occurrence: JP)
  Receive Date: 20140717
  Receipt Date: 20140717
  Transmission Date: 20150326
  Serious: Yes (Other)
  Sender: FDA-Public Use
  Company Number: PHHY2011JP120873

PATIENT
  Age: 69 Year
  Sex: Male

DRUGS (3)
  1. TASIGNA [Suspect]
     Active Substance: NILOTINIB
     Indication: CHRONIC MYELOID LEUKAEMIA
     Dosage: 800 MG, DAILY
     Dates: start: 20110415
  2. DASATINIB [Suspect]
     Active Substance: DASATINIB
     Dosage: 100 MG, UNK
  3. DASATINIB [Suspect]
     Active Substance: DASATINIB
     Dosage: 50 MG, UNK
     Dates: start: 201112

REACTIONS (2)
  - Platelet count decreased [Unknown]
  - Rash [Unknown]
